FAERS Safety Report 9227019 (Version 1)
Quarter: 2013Q2

REPORT INFORMATION
  Report Type: Spontaneous
  Country: US (occurrence: US)
  Receive Date: 20130412
  Receipt Date: 20130412
  Transmission Date: 20140414
  Serious: No
  Sender: FDA-Public Use
  Company Number: US-009507513-1304USA005119

PATIENT
  Sex: Male

DRUGS (3)
  1. SAPHRIS [Suspect]
     Dosage: RAPID DISSOLVE
  2. PREDNISONE [Concomitant]
  3. [THERAPY UNSPECIFIED] [Concomitant]

REACTIONS (1)
  - Stomatitis [Unknown]
